FAERS Safety Report 15344265 (Version 1)
Quarter: 2018Q3

REPORT INFORMATION
  Report Type: Spontaneous
  Country: US (occurrence: US)
  Receive Date: 20180903
  Receipt Date: 20180903
  Transmission Date: 20181010
  Serious: No
  Sender: FDA-Public Use
  Company Number: US-BIOVITRUM-2017US0681

PATIENT
  Age: 29 Year
  Sex: Female

DRUGS (1)
  1. KINERET [Suspect]
     Active Substance: ANAKINRA
     Indication: MUCKLE-WELLS SYNDROME

REACTIONS (4)
  - Injection site erythema [Unknown]
  - Rash [Unknown]
  - Injection site swelling [Unknown]
  - Mobility decreased [Unknown]
